FAERS Safety Report 12418268 (Version 1)
Quarter: 2016Q2

REPORT INFORMATION
  Report Type: Spontaneous
  Country: US (occurrence: US)
  Receive Date: 20160531
  Receipt Date: 20160531
  Transmission Date: 20160815
  Serious: No
  Sender: FDA-Public Use
  Company Number: US-PFIZER INC-2016255941

PATIENT
  Age: 65 Year
  Sex: Female
  Weight: 36.29 kg

DRUGS (1)
  1. DICLOFENAC SODIUM/MISOPROSTOL [Suspect]
     Active Substance: DICLOFENAC SODIUM\MISOPROSTOL
     Indication: ARTHRITIS
     Dosage: [MISOPROSTOL 200MCG]/[DICLOFENAC SODIUM 50 MG] ONE TABLET BY MOUTH AS NEEDED
     Route: 048

REACTIONS (4)
  - Product quality issue [Unknown]
  - Product solubility abnormal [None]
  - Medication residue present [None]
  - Drug ineffective [Unknown]
